FAERS Safety Report 13872381 (Version 1)
Quarter: 2017Q3

REPORT INFORMATION
  Report Type: Spontaneous
  Country: JP (occurrence: JP)
  Receive Date: 20170816
  Receipt Date: 20170816
  Transmission Date: 20171127
  Serious: Yes (Other)
  Sender: FDA-Public Use
  Company Number: JP-PFIZER INC-2017351617

PATIENT
  Sex: Female
  Weight: 69.9 kg

DRUGS (4)
  1. INLYTA [Suspect]
     Active Substance: AXITINIB
     Dosage: 4 MG, DAILY
  2. INLYTA [Suspect]
     Active Substance: AXITINIB
     Indication: METASTATIC RENAL CELL CARCINOMA
     Dosage: 10 MG, DAILY
  3. INLYTA [Suspect]
     Active Substance: AXITINIB
     Dosage: 4 MG, DAILY
  4. INLYTA [Suspect]
     Active Substance: AXITINIB
     Dosage: 6 MG, DAILY

REACTIONS (8)
  - Proteinuria [Unknown]
  - Dysphonia [Unknown]
  - Diarrhoea [Unknown]
  - Respiratory disorder [Unknown]
  - Interstitial lung disease [Unknown]
  - Chest pain [Unknown]
  - Decreased appetite [Unknown]
  - Cough [Unknown]
